FAERS Safety Report 4515845-7 (Version None)
Quarter: 2004Q4

REPORT INFORMATION
  Report Type: 
  Country: None (occurrence: None)
  Receive Date: 20041001
  Receipt Date: 20040525
  Transmission Date: 20050328
  Serious: Yes (Hospitalization)
  Sender: FDA-Public Use
  Company Number: TPA2004A00449

PATIENT
  Age: 66 Year
  Sex: Female
  Weight: 90.7194 kg

DRUGS (12)
  1. ACTOS [Suspect]
     Indication: DIABETES MELLITUS NON-INSULIN-DEPENDENT
     Dosage: SEE IMAGE
     Route: 048
     Dates: start: 20020502, end: 20021202
  2. ACTOS [Suspect]
     Indication: DIABETES MELLITUS NON-INSULIN-DEPENDENT
     Dosage: SEE IMAGE
     Route: 048
     Dates: start: 20021202
  3. HUMALOG MIX 75/25 [Suspect]
     Indication: DIABETES MELLITUS
     Dosage: 42 UNITS AM + 22 UNITS PM, 1 IN 1 D
  4. CELEBREX [Concomitant]
  5. TIMOPTIC XE (TIMOLOL MALEATE) [Concomitant]
  6. LASIX [Concomitant]
  7. AVAPRO [Concomitant]
  8. LOPRESSOR [Concomitant]
  9. PROTONIX [Concomitant]
  10. ULTRACET (ULTRACET) [Concomitant]
  11. FOLTX (TRIOBE) [Concomitant]
  12. ULTRAM [Concomitant]

REACTIONS (2)
  - HYPOGLYCAEMIA [None]
  - WEIGHT INCREASED [None]
